FAERS Safety Report 6823763-4 (Version None)
Quarter: 2010Q3

REPORT INFORMATION
  Report Type: 
  Country: None (occurrence: None)
  Receive Date: 20100708
  Receipt Date: 20060905
  Transmission Date: 20110219
  Serious: No
  Sender: FDA-Public Use
  Company Number: US-PFIZER INC-2006109408

PATIENT
  Sex: Female
  Weight: 72.57 kg

DRUGS (3)
  1. VARENICLINE [Suspect]
     Indication: EX-TOBACCO USER
     Route: 048
     Dates: start: 20060828
  2. ALLEGRA D 24 HOUR [Concomitant]
  3. XANAX [Concomitant]

REACTIONS (3)
  - MIGRAINE [None]
  - NAUSEA [None]
  - VOMITING [None]
